FAERS Safety Report 6313679-4 (Version None)
Quarter: 2009Q3

REPORT INFORMATION
  Report Type: 
  Country: None (occurrence: None)
  Receive Date: 20090818
  Receipt Date: 20090804
  Transmission Date: 20100115
  Serious: Yes (Hospitalization)
  Sender: FDA-Public Use
  Company Number: FR-MYLANLABS-2009S1013834

PATIENT
  Age: 69 Year
  Sex: Male

DRUGS (14)
  1. RISPERIDONE [Suspect]
     Indication: SCHIZOPHRENIA
     Dates: end: 20060101
  2. FLUPHENAZINE [Suspect]
     Indication: SCHIZOPHRENIA
  3. LEVOMEPROMAZINE [Suspect]
     Indication: SCHIZOPHRENIA
     Dates: end: 20060101
  4. HALOPERIDOL [Suspect]
     Indication: SCHIZOPHRENIA
     Dates: end: 20060101
  5. PIPAMPERONE [Suspect]
     Indication: SCHIZOPHRENIA
     Dates: end: 20060101
  6. MEPROBAMATE [Suspect]
     Indication: SCHIZOPHRENIA
     Dates: end: 20060101
  7. OXAZEPAM [Suspect]
     Indication: ANXIOLYTIC THERAPY
     Dates: start: 20060101
  8. CLONAZEPAM [Suspect]
     Indication: ANXIOLYTIC THERAPY
     Dates: start: 20061201
  9. OLANZAPINE [Suspect]
     Indication: SCHIZOPHRENIA
     Dates: start: 20061201, end: 20061201
  10. AMITRIPTYLINE [Concomitant]
     Indication: DEPRESSION
     Dates: end: 20060101
  11. MIRTAZAPINE [Concomitant]
     Indication: DEPRESSION
     Dates: end: 20060101
  12. TRIHEXYPHENIDYL HCL [Concomitant]
  13. ACEPROMETAZINE [Concomitant]
     Indication: ANTIALLERGIC THERAPY
  14. VALPROMIDE [Concomitant]
     Dates: start: 20061201

REACTIONS (1)
  - HYPOTHERMIA [None]
